FAERS Safety Report 5486104-3 (Version None)
Quarter: 2007Q4

REPORT INFORMATION
  Report Type: 
  Country: None (occurrence: None)
  Receive Date: 20071012
  Receipt Date: 20071004
  Transmission Date: 20080405
  Serious: Yes (Other)
  Sender: FDA-Public Use
  Company Number: US021266

PATIENT
  Age: 72 Year
  Sex: Female
  Weight: 104.3273 kg

DRUGS (4)
  1. PROVIGIL [Suspect]
     Indication: NARCOLEPSY
     Dosage: ORAL
     Route: 048
     Dates: start: 20000101, end: 20070901
  2. HIGH BLOOD PRESSURE [Concomitant]
  3. GLUCOPHAGE [Concomitant]
  4. DETROL [Concomitant]

REACTIONS (7)
  - CONDITION AGGRAVATED [None]
  - DRUG INEFFECTIVE [None]
  - ERYTHEMA [None]
  - NARCOLEPSY [None]
  - OEDEMA MOUTH [None]
  - STOMATITIS [None]
  - SWELLING FACE [None]
